FAERS Safety Report 6069806-X (Version None)
Quarter: 2009Q1

REPORT INFORMATION
  Report Type: 
  Country: None (occurrence: None)
  Receive Date: 20090209
  Receipt Date: 20090130
  Transmission Date: 20090719
  Serious: Yes (Other)
  Sender: FDA-Public Use
  Company Number: US-AMGEN-US331203

PATIENT
  Age: 48 Year
  Sex: Female
  Weight: 62 kg

DRUGS (6)
  1. NPLATE [Suspect]
     Indication: IDIOPATHIC THROMBOCYTOPENIC PURPURA
     Route: 058
     Dates: start: 20090120
  2. AZATHIOPRINE [Concomitant]
     Route: 065
     Dates: start: 20080624
  3. UNSPECIFIED STEROIDS [Concomitant]
     Route: 065
  4. IMMUNOGLOBULINS [Concomitant]
     Route: 042
  5. PLATELETS [Concomitant]
     Route: 042
  6. DACTINOMYCIN [Concomitant]
     Route: 065
     Dates: end: 20090122

REACTIONS (1)
  - TRANSAMINASES INCREASED [None]
